FAERS Safety Report 6248379-2 (Version None)
Quarter: 2009Q2

REPORT INFORMATION
  Report Type: 
  Country: None (occurrence: None)
  Receive Date: 20090629
  Receipt Date: 20090623
  Transmission Date: 20091009
  Serious: Yes (Life-Threatening, Hospitalization, Other)
  Sender: FDA-Public Use
  Company Number: PHHY2009JP09921

PATIENT
  Sex: Male
  Weight: 78 kg

DRUGS (4)
  1. LAMISIL [Suspect]
     Indication: ONYCHOMYCOSIS
     Dosage: 125 MG, QD
     Route: 048
     Dates: start: 20090202, end: 20090220
  2. ACETAMINOPHEN [Suspect]
     Indication: ASTHMA
     Dosage: UNK
     Route: 048
     Dates: start: 20090213, end: 20090216
  3. THEOPHYLLINE [Suspect]
     Indication: ASTHMA
     Dosage: UNK
     Route: 048
     Dates: start: 20090213, end: 20090216
  4. LEVOFLOXACIN [Suspect]
     Indication: ASTHMA
     Dosage: UNK
     Route: 048
     Dates: start: 20090213, end: 20090216

REACTIONS (3)
  - BODY TEMPERATURE INCREASED [None]
  - BRONCHITIS [None]
  - HEPATITIS ACUTE [None]
